FAERS Safety Report 11130079 (Version 6)
Quarter: 2016Q3

REPORT INFORMATION
  Report Type: Report from Study
  Country: BR (occurrence: BR)
  Receive Date: 20150521
  Receipt Date: 20160916
  Transmission Date: 20161109
  Serious: Yes (Hospitalization, Disabling, Other)
  Sender: FDA-Public Use
  Company Number: PHHY2015BR061075

PATIENT
  Age: 58 Year
  Sex: Female
  Weight: 95 kg

DRUGS (4)
  1. SANDOSTATIN LAR DEPOT [Suspect]
     Active Substance: OCTREOTIDE ACETATE
     Indication: ACROMEGALY
     Dosage: 20 MG, QMO/EVERY 4 WEEKS
     Route: 030
     Dates: start: 2003
  2. SANDOSTATIN [Suspect]
     Active Substance: OCTREOTIDE ACETATE
     Indication: PRODUCT USED FOR UNKNOWN INDICATION
     Dosage: UNK UNK, TID
     Route: 065
     Dates: start: 2002
  3. SANDOSTATIN LAR DEPOT [Suspect]
     Active Substance: OCTREOTIDE ACETATE
     Dosage: 1 DF, Q2MO/EVERY 8 WEEKS
     Route: 030
     Dates: start: 2015
  4. SANDOSTATIN LAR DEPOT [Suspect]
     Active Substance: OCTREOTIDE ACETATE
     Dosage: 1 DF, Q2MO/EVERY 8 WEEKS
     Route: 030
     Dates: end: 20141230

REACTIONS (11)
  - Coma [Recovered/Resolved]
  - Tibia fracture [Recovering/Resolving]
  - Road traffic accident [Recovered/Resolved]
  - Abasia [Recovered/Resolved]
  - Accident [Unknown]
  - Inappropriate schedule of drug administration [Unknown]
  - Bone fissure [Recovered/Resolved]
  - Femur fracture [Recovering/Resolving]
  - Urinary tract infection [Recovered/Resolved]
  - Kidney infection [Unknown]
  - Weight decreased [Unknown]

NARRATIVE: CASE EVENT DATE: 20141220
